FAERS Safety Report 19483805 (Version 1)
Quarter: 2021Q3

REPORT INFORMATION
  Report Type: Spontaneous
  Country: JP (occurrence: JP)
  Receive Date: 20210701
  Receipt Date: 20210701
  Transmission Date: 20211014
  Serious: Yes (Hospitalization)
  Sender: FDA-Public Use
  Company Number: JP-ABBVIE-21K-087-3777496-00

PATIENT
  Age: 29 Year
  Sex: Male

DRUGS (3)
  1. ZONISAMIDE. [Suspect]
     Active Substance: ZONISAMIDE
     Indication: EPILEPSY
     Route: 048
  2. LUVOX [Suspect]
     Active Substance: FLUVOXAMINE MALEATE
     Indication: DEPRESSION
     Route: 048
     Dates: end: 20210215
  3. LEVETIRACETAM. [Suspect]
     Active Substance: LEVETIRACETAM
     Indication: EPILEPSY
     Route: 048

REACTIONS (5)
  - Treatment noncompliance [Unknown]
  - Altered state of consciousness [Recovered/Resolved]
  - Loss of consciousness [Recovered/Resolved]
  - Communication disorder [Recovered/Resolved]
  - Dysarthria [Recovered/Resolved]

NARRATIVE: CASE EVENT DATE: 20210215
